FAERS Safety Report 5496954-5 (Version None)
Quarter: 2007Q4

REPORT INFORMATION
  Report Type: 
  Country: None (occurrence: None)
  Receive Date: 20071025
  Receipt Date: 20071016
  Transmission Date: 20080405
  Serious: Yes (Disabling)
  Sender: FDA-Public Use
  Company Number: B0488593A

PATIENT
  Age: 67 Year
  Sex: Female

DRUGS (6)
  1. ZYBAN [Suspect]
     Indication: DEPRESSION
     Route: 048
     Dates: start: 20070828, end: 20070924
  2. AMITRIPTYLINE HCL [Concomitant]
     Route: 048
  3. PAROXETINE [Concomitant]
     Route: 048
  4. RISPERIDONE [Concomitant]
     Route: 048
  5. LEVOTHYROXINE SODIUM [Concomitant]
  6. OMEPRAZOLE [Concomitant]
     Route: 065

REACTIONS (5)
  - AGITATION [None]
  - DRUG ADMINISTRATION ERROR [None]
  - DYSARTHRIA [None]
  - ILL-DEFINED DISORDER [None]
  - PALPITATIONS [None]
